FAERS Safety Report 4982593-9 (Version None)
Quarter: 2006Q1

REPORT INFORMATION
  Report Type: 
  Country: None (occurrence: None)
  Receive Date: 20060227
  Receipt Date: 20050608
  Transmission Date: 20060701
  Serious: Yes (Disabling)
  Sender: FDA-Public Use
  Company Number: WAES 0506USA01312

PATIENT
  Age: 79 Year
  Sex: Male

DRUGS (2)
  1. ZOCOR [Suspect]
     Indication: BLOOD CHOLESTEROL INCREASED
     Dosage: DAILY/PO
     Route: 048
     Dates: start: 20010601
  2. OMEPRAZOLE [Concomitant]

REACTIONS (3)
  - DRUG ADMINISTRATION ERROR [None]
  - MUSCLE SPASMS [None]
  - MYALGIA [None]
